FAERS Safety Report 9393473 (Version 1)
Quarter: 2013Q3

REPORT INFORMATION
  Report Type: Spontaneous
  Country: NL (occurrence: NL)
  Receive Date: 20130710
  Receipt Date: 20130710
  Transmission Date: 20140515
  Serious: Yes (Other)
  Sender: FDA-Public Use
  Company Number: PHHY2013NL070410

PATIENT
  Age: 63 Year
  Sex: Male

DRUGS (7)
  1. PREDNISOLONE [Suspect]
     Indication: INFLAMMATION
     Dosage: 80 MG, PER DAY
     Route: 048
  2. PREDNISOLONE [Suspect]
     Dosage: 20 MG, PER DAY
     Route: 048
  3. AZATHIOPRINE [Suspect]
     Indication: INFLAMMATION
     Dosage: 100 MG, DAILY
  4. METHYLPREDNISOLONE [Suspect]
     Indication: INFLAMMATION
     Dosage: 1000 MG, DAILY
     Route: 042
  5. METHOTREXATE [Suspect]
     Indication: INFLAMMATION
     Dosage: 2.5 MG, PER WEEK
  6. MYCOPHENOLATE MOFETIL [Concomitant]
  7. VALACICLOVIR [Concomitant]
     Route: 042

REACTIONS (3)
  - Pancytopenia [Recovered/Resolved]
  - Hepatic function abnormal [Unknown]
  - Erythropoiesis abnormal [Unknown]
